FAERS Safety Report 6502408-7 (Version None)
Quarter: 2009Q4

REPORT INFORMATION
  Report Type: 
  Country: None (occurrence: None)
  Receive Date: 20091216
  Receipt Date: 20091119
  Transmission Date: 20100525
  Serious: Yes (Hospitalization)
  Sender: FDA-Public Use
  Company Number: US-ABBOTT-09P-163-0609674-00

PATIENT
  Sex: Male
  Weight: 118.86 kg

DRUGS (2)
  1. TRILIPIX [Suspect]
     Indication: BLOOD CHOLESTEROL
     Route: 048
     Dates: start: 20090815, end: 20090919
  2. BLINDED TRIAL MEDICATION [Suspect]
     Indication: CORONARY ARTERY DISEASE
     Route: 048
     Dates: start: 20090806

REACTIONS (1)
  - PANCREATITIS [None]
